FAERS Safety Report 6917191-0 (Version None)
Quarter: 2010Q3

REPORT INFORMATION
  Report Type: 
  Country: None (occurrence: None)
  Receive Date: 20100810
  Receipt Date: 20100730
  Transmission Date: 20110219
  Serious: Yes (Hospitalization, Other)
  Sender: FDA-Public Use
  Company Number: IT-TYCO HEALTHCARE/MALLINCKRODT-T201001736

PATIENT
  Age: 30 Month
  Sex: Female

DRUGS (1)
  1. METHADOSE [Suspect]
     Dosage: UNK
     Route: 048

REACTIONS (4)
  - ACCIDENTAL EXPOSURE [None]
  - DRUG EXPOSURE VIA BREAST MILK [None]
  - ENCEPHALOPATHY [None]
  - FEBRILE CONVULSION [None]
